FAERS Safety Report 6423007-1 (Version None)
Quarter: 2009Q4

REPORT INFORMATION
  Report Type: 
  Country: None (occurrence: None)
  Receive Date: 20091027
  Receipt Date: 20090209
  Transmission Date: 20100525
  Serious: Yes (Other)
  Sender: FDA-Public Use
  Company Number: 56665

PATIENT
  Age: 70 Year
  Sex: Male

DRUGS (1)
  1. AMIODARONE HCL [Suspect]
     Indication: ATRIAL FIBRILLATION
     Dosage: 150MG; 1MG/MIN FOR 6 HOURS, THEN 0.5MG/MIN
     Dates: start: 20090206, end: 20090208

REACTIONS (1)
  - EXTRAVASATION [None]
